FAERS Safety Report 7684715-8 (Version None)
Quarter: 2011Q3

REPORT INFORMATION
  Report Type: 
  Country: None (occurrence: None)
  Receive Date: 20110810
  Receipt Date: 20110802
  Transmission Date: 20111222
  Serious: Yes (Other)
  Sender: FDA-Public Use
  Company Number: JPI-P-016154

PATIENT
  Age: 47 Year
  Sex: Female
  Weight: 63.5036 kg

DRUGS (5)
  1. XYREM [Suspect]
     Indication: CATAPLEXY
     Dosage: 4.5 GM (2.25 GM, 2 IN 1 D), ORAL 3GM (1.5 GM, 2 IN 1 D), ORAL
     Route: 048
     Dates: start: 20060220
  2. FLUVASTATIN SODIUM [Concomitant]
  3. MODAFINIL [Concomitant]
  4. CLONIDINE [Concomitant]
  5. DESVENLAFAXINE [Concomitant]

REACTIONS (3)
  - ABDOMINAL PAIN UPPER [None]
  - CHOLELITHIASIS [None]
  - ABDOMINAL PAIN [None]
